FAERS Safety Report 8878972 (Version 4)
Quarter: 2013Q1

REPORT INFORMATION
  Report Type: Other
  Country: JP (occurrence: JP)
  Receive Date: 20121026
  Receipt Date: 20130201
  Transmission Date: 20140127
  Serious: Yes (Life-Threatening, Hospitalization)
  Sender: FDA-Public Use
  Company Number: JP-BRISTOL-MYERS SQUIBB COMPANY-17063686

PATIENT
  Age: 39 Year
  Sex: Female

DRUGS (10)
  1. ABILIFY TABS [Suspect]
     Indication: HALLUCINATION
     Route: 048
     Dates: start: 20120324, end: 20120423
  2. ABILIFY TABS [Suspect]
     Indication: DELUSION
     Route: 048
     Dates: start: 20120324, end: 20120423
  3. RISPERIDONE [Concomitant]
     Indication: SCHIZOPHRENIA
     Route: 048
     Dates: start: 20120227, end: 20120308
  4. OXYCODONE [Concomitant]
     Dosage: INJECTION
     Dates: start: 20120416
  5. PREGABALIN [Concomitant]
     Indication: NEURALGIA
     Dosage: CAPSULE
     Dates: start: 20120303, end: 20120423
  6. TRAMADOL HCL [Concomitant]
     Dates: start: 20120227, end: 20120423
  7. DULOXETINE HCL [Concomitant]
     Dosage: CAPSULES
     Dates: start: 20120307, end: 20120423
  8. KETALAR [Concomitant]
     Indication: HYPOAESTHESIA
     Dosage: INJECTION
     Dates: start: 20120412, end: 20120419
  9. ROHYPNOL [Concomitant]
     Dates: start: 20120225, end: 20120423
  10. SEROQUEL [Concomitant]
     Dates: start: 20120225, end: 20120423

REACTIONS (3)
  - Haematemesis [Recovering/Resolving]
  - Abdominal distension [Not Recovered/Not Resolved]
  - Insomnia [Recovering/Resolving]
